FAERS Safety Report 5542511-1 (Version None)
Quarter: 2007Q4

REPORT INFORMATION
  Report Type: 
  Country: None (occurrence: None)
  Receive Date: 20071129
  Receipt Date: 20070614
  Transmission Date: 20080405
  Serious: Yes (Hospitalization)
  Sender: FDA-Public Use
  Company Number: US200703006617

PATIENT
  Age: 54 Year
  Sex: Female
  Weight: 67.1 kg

DRUGS (9)
  1. ZYPREXA [Suspect]
     Indication: BIPOLAR I DISORDER
     Dosage: 5 MG, ORAL
     Route: 048
     Dates: start: 20070223, end: 20070302
  2. CLONIDINE [Concomitant]
  3. ZOLPIDEM TARTRATE [Concomitant]
  4. TOPROL-XL [Concomitant]
  5. LEXAPRO [Concomitant]
  6. SEROQUEL [Concomitant]
  7. CARTIA XT [Concomitant]
  8. IRBESARTAN [Concomitant]
  9. HYDROCHLOROTHIAZIDE [Concomitant]

REACTIONS (1)
  - BLOOD GLUCOSE INCREASED [None]
